FAERS Safety Report 14632803 (Version 2)
Quarter: 2018Q2

REPORT INFORMATION
  Report Type: Spontaneous
  Country: JO (occurrence: JO)
  Receive Date: 20180313
  Receipt Date: 20180508
  Transmission Date: 20180711
  Serious: Yes (Other)
  Sender: FDA-Public Use
  Company Number: PHHY2018JO041483

PATIENT
  Age: 65 Year
  Sex: Male

DRUGS (2)
  1. CONCOR [Concomitant]
     Active Substance: BISOPROLOL FUMARATE
     Indication: HYPERTENSION
     Dosage: UNK UNK, QD
     Route: 048
     Dates: start: 20100101
  2. CURAM [Suspect]
     Active Substance: AMOXICILLIN\CLAVULANATE POTASSIUM
     Indication: LOWER RESPIRATORY TRACT INFECTION
     Dosage: 1 DF, TID FOR 4 DAYS
     Route: 048
     Dates: start: 20180303, end: 20180307

REACTIONS (1)
  - Tongue fungal infection [Not Recovered/Not Resolved]

NARRATIVE: CASE EVENT DATE: 20180305
